FAERS Safety Report 15826403 (Version 1)
Quarter: 2019Q1

REPORT INFORMATION
  Report Type: Spontaneous
  Country: ES (occurrence: ES)
  Receive Date: 20190115
  Receipt Date: 20190115
  Transmission Date: 20190417
  Serious: Yes (Other)
  Sender: FDA-Public Use
  Company Number: ES-CELLTRION INC.-2019ES017738

PATIENT

DRUGS (2)
  1. CICLOSPORIN [Suspect]
     Active Substance: CYCLOSPORINE
     Indication: PYODERMA GANGRENOSUM
     Dosage: 4 MG/KG, DAILY
     Route: 048
  2. INFLIXIMAB (UNKNOWN) [Suspect]
     Active Substance: INFLIXIMAB
     Indication: PYODERMA GANGRENOSUM
     Dosage: 5 MG/KG,EVERY 8 WEEKS
     Route: 065

REACTIONS (4)
  - Ulcer [Unknown]
  - Pyoderma gangrenosum [Unknown]
  - Product use in unapproved indication [Unknown]
  - Condition aggravated [Unknown]
